FAERS Safety Report 16072105 (Version 1)
Quarter: 2020Q3

REPORT INFORMATION
  Report Type: Report from Study
  Country: BR (occurrence: BR)
  Receive Date: 20190314
  Receipt Date: 20190314
  Transmission Date: 20201105
  Serious: Yes (Life-Threatening, Hospitalization)
  Sender: FDA-Public Use
  Company Number: BR-JNJFOC-20190308268

PATIENT
  Age: 16 Year
  Sex: Female
  Weight: 54 kg

DRUGS (6)
  1. PLACEBO [Suspect]
     Active Substance: UNSPECIFIED INGREDIENT
     Indication: MAJOR DEPRESSION
     Route: 045
     Dates: start: 20190227
  2. BLINDED; ESKETAMINE [Suspect]
     Active Substance: ESKETAMINE
     Indication: MAJOR DEPRESSION
     Route: 045
     Dates: start: 20190227
  3. BLINDED; ESKETAMINE [Suspect]
     Active Substance: ESKETAMINE
     Indication: SUICIDAL IDEATION
     Route: 045
     Dates: start: 20190227
  4. PLACEBO [Suspect]
     Active Substance: UNSPECIFIED INGREDIENT
     Indication: SUICIDAL IDEATION
     Route: 045
     Dates: start: 20190227
  5. ESCITALOPRAM [Suspect]
     Active Substance: ESCITALOPRAM OXALATE
     Indication: PRODUCT USED FOR UNKNOWN INDICATION
  6. QUETIAPINE. [Concomitant]
     Active Substance: QUETIAPINE
     Indication: INSOMNIA

REACTIONS (1)
  - Suicide attempt [Recovered/Resolved]

NARRATIVE: CASE EVENT DATE: 20190305
